FAERS Safety Report 5515363-3 (Version None)
Quarter: 2007Q4

REPORT INFORMATION
  Report Type: 
  Country: None (occurrence: None)
  Receive Date: 20071109
  Receipt Date: 20071102
  Transmission Date: 20080405
  Serious: Yes (Death, Hospitalization)
  Sender: FDA-Public Use
  Company Number: 2007US001131

PATIENT
  Age: 55 Year
  Sex: Female

DRUGS (8)
  1. PROGRAF [Suspect]
     Indication: LIVER TRANSPLANT REJECTION
     Dosage: 2 MG, BID, ORAL
     Route: 048
     Dates: start: 20070421
  2. MYCOPHENOLATE MOFETIL [Suspect]
     Indication: LIVER TRANSPLANT REJECTION
     Dosage: 1 G., BID, ORAL
     Route: 048
     Dates: start: 20070421, end: 20070504
  3. BACTRIM [Concomitant]
  4. ACTIGALL [Concomitant]
  5. BUMEX [Concomitant]
  6. PEPCID [Concomitant]
  7. FLEXERIL [Concomitant]
  8. NORCO (HYDROCODONE BITARTRATE) [Concomitant]

REACTIONS (3)
  - GRAFT VERSUS HOST DISEASE [None]
  - INFECTION [None]
  - PLEURAL EFFUSION [None]
